FAERS Safety Report 9747769 (Version 1)
Quarter: 2013Q4

REPORT INFORMATION
  Report Type: Spontaneous
  Country: US (occurrence: None)
  Receive Date: 20131211
  Receipt Date: 20131211
  Transmission Date: 20140711
  Serious: Yes (Disabling)
  Sender: FDA-Public Use
  Company Number: None

PATIENT
  Age: 22 Year
  Sex: Female
  Weight: 49.44 kg

DRUGS (1)
  1. LUPRON DEPOT [Suspect]
     Indication: ENDOMETRIOSIS
     Dosage: EVERY 3 MONTHS? INTO THE MUSCLE
     Dates: start: 20130321, end: 20131210

REACTIONS (8)
  - Hot flush [None]
  - Weight decreased [None]
  - Bone pain [None]
  - Arthralgia [None]
  - Memory impairment [None]
  - Emotional disorder [None]
  - Nervous system disorder [None]
  - Arthropathy [None]
